FAERS Safety Report 5302265-0 (Version None)
Quarter: 2007Q1

REPORT INFORMATION
  Report Type: 
  Country: None (occurrence: None)
  Receive Date: 20070201
  Receipt Date: 20061212
  Transmission Date: 20070707
  Serious: No
  Sender: FDA-Public Use
  Company Number: 2006PV026803

PATIENT
  Age: 68 Year
  Sex: Female
  Weight: 87.0906 kg

DRUGS (6)
  1. BYETTA [Suspect]
     Indication: DIABETES MELLITUS NON-INSULIN-DEPENDENT
     Dosage: SEE IMAGE
     Route: 058
     Dates: start: 20060929, end: 20061028
  2. BYETTA [Suspect]
     Indication: DIABETES MELLITUS NON-INSULIN-DEPENDENT
     Dosage: SEE IMAGE
     Route: 058
     Dates: start: 20061029
  3. METFORMIN HCL [Concomitant]
  4. AMARYL [Concomitant]
  5. IMUAN [Concomitant]
  6. PREDNISONE TAB [Concomitant]

REACTIONS (5)
  - ASTHENIA [None]
  - BLOOD GLUCOSE DECREASED [None]
  - DISORIENTATION [None]
  - DIZZINESS [None]
  - TREMOR [None]
